FAERS Safety Report 13001981 (Version 1)
Quarter: 2016Q4

REPORT INFORMATION
  Report Type: Spontaneous
  Country: US (occurrence: US)
  Receive Date: 20161206
  Receipt Date: 20161206
  Transmission Date: 20170207
  Serious: Yes (Hospitalization)
  Sender: FDA-Public Use
  Company Number: US-INTERPRAG-PM-OCA2016-00271

PATIENT

DRUGS (7)
  1. TRAMADOL. [Concomitant]
     Active Substance: TRAMADOL
  2. HYDROCHLOROTHIAZIDE. [Concomitant]
     Active Substance: HYDROCHLOROTHIAZIDE
  3. VALSARTAN. [Concomitant]
     Active Substance: VALSARTAN
  4. RANITIDINE. [Concomitant]
     Active Substance: RANITIDINE
  5. OCALIVA [Suspect]
     Active Substance: OBETICHOLIC ACID
     Indication: BILIARY CIRRHOSIS PRIMARY
     Dosage: 5 MG, QD
     Route: 048
     Dates: start: 20161113, end: 20161122
  6. POTASSIUM [Concomitant]
     Active Substance: POTASSIUM
  7. FERROUS SULFATE. [Concomitant]
     Active Substance: FERROUS SULFATE

REACTIONS (5)
  - Hot flush [Unknown]
  - Hallucination [Unknown]
  - Disorientation [Unknown]
  - Hepatic encephalopathy [Unknown]
  - Chills [Unknown]

NARRATIVE: CASE EVENT DATE: 20161122
